FAERS Safety Report 10137326 (Version 1)
Quarter: 2014Q2

REPORT INFORMATION
  Report Type: Spontaneous
  Country: US (occurrence: US)
  Receive Date: 20140429
  Receipt Date: 20140429
  Transmission Date: 20141212
  Serious: Yes (Other)
  Sender: FDA-Public Use
  Company Number: US-ASTRAZENECA-2014SE27438

PATIENT
  Age: 71 Year
  Sex: Male

DRUGS (8)
  1. TICAGRELOR [Suspect]
     Indication: ANTIPLATELET THERAPY
     Dosage: 180-MG LOADING DOSE
     Route: 048
  2. TICAGRELOR [Interacting]
     Indication: ANTIPLATELET THERAPY
     Route: 048
  3. PHENYTOIN [Interacting]
     Indication: CONVULSION
     Route: 065
  4. HEPARIN [Concomitant]
     Route: 042
  5. EPTIFIBATIDE [Concomitant]
     Dosage: A SINGLE BOLUS DOSE OF EPTIFIBATIDE 180 G/KG
     Route: 065
  6. EPTIFIBATIDE [Concomitant]
     Dosage: A MAINTENANCE CONTINUOUS INFUSION OF 2 G/KG/MIN
     Route: 065
  7. EPTIFIBATIDE [Concomitant]
     Dosage: CONTINUOUS INFUSION FOR 18 HOURS FOLLOWING THE CASE
     Route: 065
  8. ASPIRIN [Concomitant]
     Indication: ANTIPLATELET THERAPY
     Route: 065

REACTIONS (2)
  - Drug interaction [Unknown]
  - Platelet aggregation increased [Recovered/Resolved]
